FAERS Safety Report 8853408 (Version 1)
Quarter: 2012Q4

REPORT INFORMATION
  Report Type: 
  Country: FR (occurrence: FR)
  Receive Date: 20121022
  Receipt Date: 20121022
  Transmission Date: 20130627
  Serious: Yes (Other)
  Sender: FDA-Public Use
  Company Number: FR-009507513-1206FRA00093

PATIENT
  Age: 55 None
  Sex: Female

DRUGS (3)
  1. COZAAR [Suspect]
     Indication: HYPERTENSION
     Dosage: 50 mg, qd
     Route: 048
     Dates: start: 201204, end: 201205
  2. COZAAR [Suspect]
     Dosage: 50 mg, qd
     Route: 048
     Dates: start: 201205, end: 20120618
  3. DAFALGAN [Concomitant]

REACTIONS (3)
  - Malaise [Recovered/Resolved]
  - Blood pressure increased [Recovered/Resolved]
  - Depression [Recovered/Resolved]
